FAERS Safety Report 8157063-X (Version None)
Quarter: 2012Q1

REPORT INFORMATION
  Report Type: 
  Country: None (occurrence: None)
  Receive Date: 20120210
  Receipt Date: 20111206
  Transmission Date: 20120608
  Serious: Yes (Hospitalization)
  Sender: FDA-Public Use
  Company Number: 2011030533

PATIENT
  Sex: Male
  Weight: 72.5755 kg

DRUGS (9)
  1. SYNTHROID [Concomitant]
  2. ADVAIR DISKUS 100/50 [Concomitant]
  3. PREVACID [Concomitant]
  4. SINGULAIR [Concomitant]
  5. LANOXIN [Concomitant]
  6. PROVENTIL [Concomitant]
  7. LIPITOR [Concomitant]
  8. HIZENTRA [Suspect]
     Dosage: (10 G 1X/WEEK SUBCUTANEOUS)
     Route: 058
  9. FLOMAX [Concomitant]

REACTIONS (4)
  - CHILLS [None]
  - TREMOR [None]
  - SEPSIS [None]
  - PNEUMONIA BACTERIAL [None]
